FAERS Safety Report 18496514 (Version 1)
Quarter: 2020Q4

REPORT INFORMATION
  Report Type: Spontaneous
  Country: US (occurrence: US)
  Receive Date: 20201112
  Receipt Date: 20201112
  Transmission Date: 20210114
  Serious: Yes (Other)
  Sender: FDA-Public Use
  Company Number: US-TEVA-2020-US-1847877

PATIENT
  Sex: Female

DRUGS (1)
  1. TRAMADOL. [Suspect]
     Active Substance: TRAMADOL
     Route: 065

REACTIONS (6)
  - Drug dependence [Unknown]
  - Gastrointestinal pain [Unknown]
  - Drug tolerance [Unknown]
  - Malabsorption [Unknown]
  - Haemorrhoids [Unknown]
  - Abdominal discomfort [Unknown]
